FAERS Safety Report 12714901 (Version 2)
Quarter: 2016Q4

REPORT INFORMATION
  Report Type: Report from Study
  Country: US (occurrence: US)
  Receive Date: 20160905
  Receipt Date: 20161018
  Transmission Date: 20170207
  Serious: Yes (Death, Other)
  Sender: FDA-Public Use
  Company Number: US-JNJFOC-20160901675

PATIENT
  Sex: Male

DRUGS (8)
  1. ALEVE [Concomitant]
     Active Substance: NAPROXEN SODIUM
  2. TESTIM [Concomitant]
     Active Substance: TESTOSTERONE
  3. IMBRUVICA [Suspect]
     Active Substance: IBRUTINIB
     Indication: CHRONIC LYMPHOCYTIC LEUKAEMIA
     Route: 048
     Dates: start: 20160326
  4. ASPIRIN. [Concomitant]
     Active Substance: ASPIRIN
  5. ALLOPURINOL. [Concomitant]
     Active Substance: ALLOPURINOL
  6. ATORVASTATIN [Concomitant]
     Active Substance: ATORVASTATIN
  7. LISINOPRIL. [Concomitant]
     Active Substance: LISINOPRIL
  8. PROTONIX [Concomitant]
     Active Substance: PANTOPRAZOLE SODIUM

REACTIONS (5)
  - Cardiomyopathy [Fatal]
  - Disease progression [Unknown]
  - Sepsis [Fatal]
  - Pneumonia [Fatal]
  - Malnutrition [Unknown]
